FAERS Safety Report 12587463 (Version 3)
Quarter: 2017Q1

REPORT INFORMATION
  Report Type: Spontaneous
  Country: US (occurrence: US)
  Receive Date: 20160725
  Receipt Date: 20170102
  Transmission Date: 20170428
  Serious: Yes (Congenital Anomaly, Other)
  Sender: FDA-Public Use
  Company Number: PHEH2016US018232

PATIENT
  Sex: Female

DRUGS (3)
  1. ONDANSETRON HYDROCHLORIDE. [Suspect]
     Active Substance: ONDANSETRON HYDROCHLORIDE
     Indication: FOETAL EXPOSURE DURING PREGNANCY
     Route: 064
  2. ZOFRAN [Suspect]
     Active Substance: ONDANSETRON HYDROCHLORIDE
     Indication: FOETAL EXPOSURE DURING PREGNANCY
     Dosage: MOTHER^S DOSE: 1 DF, PRN
     Route: 064
  3. ZOFRAN [Suspect]
     Active Substance: ONDANSETRON HYDROCHLORIDE
     Indication: FOETAL EXPOSURE DURING PREGNANCY
     Dosage: MOTHER^S DOSE: 8 MG, QD
     Route: 064

REACTIONS (26)
  - Monoplegia [Unknown]
  - Transposition of the great vessels [Unknown]
  - Atrial septal defect [Unknown]
  - Right ventricular dilatation [Unknown]
  - Keratosis pilaris [Unknown]
  - Emotional distress [Unknown]
  - Pericardial effusion [Unknown]
  - Anhedonia [Unknown]
  - Injury [Unknown]
  - Multiple congenital abnormalities [Unknown]
  - Congenital anomaly [Unknown]
  - Foetal exposure during pregnancy [Unknown]
  - Tricuspid valve incompetence [Unknown]
  - Neonatal respiratory distress syndrome [Unknown]
  - Right ventricular hypertrophy [Unknown]
  - Patent ductus arteriosus [Unknown]
  - Ehlers-Danlos syndrome [Unknown]
  - Cerebral ischaemia [Unknown]
  - Cardiomegaly [Unknown]
  - Heart disease congenital [Unknown]
  - Selective eating disorder [Unknown]
  - Congenital brain damage [Unknown]
  - Peripheral artery occlusion [Unknown]
  - Pain [Unknown]
  - Developmental delay [Unknown]
  - Anxiety [Unknown]
